FAERS Safety Report 6717532-3 (Version None)
Quarter: 2010Q2

REPORT INFORMATION
  Report Type: 
  Country: None (occurrence: None)
  Receive Date: 20100503
  Receipt Date: 20100416
  Transmission Date: 20101027
  Serious: Yes (Other)
  Sender: FDA-Public Use
  Company Number: AVE_01779_2010

PATIENT
  Age: 51 Year
  Sex: Female

DRUGS (1)
  1. NICOTINE [Suspect]
     Indication: SMOKING CESSATION THERAPY
     Dosage: 21 MG QD; TRANSDERMAL
     Route: 062
     Dates: start: 20100415

REACTIONS (7)
  - APPLICATION SITE ERYTHEMA [None]
  - CHRONIC OBSTRUCTIVE PULMONARY DISEASE [None]
  - CONDITION AGGRAVATED [None]
  - INSOMNIA [None]
  - MYALGIA [None]
  - PAIN IN EXTREMITY [None]
  - TREATMENT NONCOMPLIANCE [None]
